FAERS Safety Report 10548295 (Version 1)
Quarter: 2014Q4

REPORT INFORMATION
  Report Type: Spontaneous
  Country: US (occurrence: None)
  Receive Date: 20141024
  Receipt Date: 20141024
  Transmission Date: 20150529
  Serious: Yes (Other)
  Sender: FDA-Public Use
  Company Number: COR_00115_2014

PATIENT

DRUGS (3)
  1. GEMCITABINE [Suspect]
     Active Substance: GEMCITABINE\GEMCITABINE HYDROCHLORIDE
     Indication: NEOPLASM
     Dosage: ON DAY 1 AND DAY 8 OF A 21 DAY CYCLE, 3 CYCLES
     Route: 042
  2. DOVITINIB [Suspect]
     Active Substance: DOVITINIB LACTATE
     Indication: NEOPLASM
     Dosage: 1 CYCLE
     Route: 048
  3. CARBOPLATIN. [Suspect]
     Active Substance: CARBOPLATIN
     Indication: NEOPLASM
     Dosage: [AUC 5, ON DAY 1 OF A 21 DAY CYCLE, 3 CYCLES]

REACTIONS (2)
  - Fatigue [None]
  - Hypertension [None]
